FAERS Safety Report 5795219-1 (Version None)
Quarter: 2008Q2

REPORT INFORMATION
  Report Type: 
  Country: None (occurrence: None)
  Receive Date: 20080630
  Receipt Date: 20080620
  Transmission Date: 20081010
  Serious: Yes (Hospitalization, Other)
  Sender: FDA-Public Use
  Company Number: FR-BRISTOL-MYERS SQUIBB COMPANY-14244156

PATIENT
  Age: 60 Year
  Sex: Male

DRUGS (8)
  1. GLUCOPHAGE [Suspect]
     Indication: TYPE 2 DIABETES MELLITUS
     Dosage: 2550 MG(850MG 3 IN 1 DAY)
     Route: 048
     Dates: end: 20080413
  2. LASIX [Concomitant]
  3. PREVISCAN [Concomitant]
  4. CORDARONE [Concomitant]
  5. CRESTOR [Concomitant]
  6. NEBILOX [Concomitant]
  7. NIFLURIL [Concomitant]
  8. SPIRIVA [Concomitant]

REACTIONS (3)
  - METABOLIC ACIDOSIS [None]
  - MULTI-ORGAN FAILURE [None]
  - SHOCK [None]
